FAERS Safety Report 15659933 (Version 1)
Quarter: 2018Q4

REPORT INFORMATION
  Report Type: Spontaneous
  Country: US (occurrence: US)
  Receive Date: 20181127
  Receipt Date: 20181127
  Transmission Date: 20190205
  Serious: No
  Sender: FDA-Public Use
  Company Number: US-TEVA-2018-US-979252

PATIENT
  Sex: Female

DRUGS (1)
  1. ESTRADIOL TABLETS [Suspect]
     Active Substance: ESTRADIOL
     Indication: HORMONE REPLACEMENT THERAPY
     Dates: start: 201811

REACTIONS (3)
  - Headache [Unknown]
  - Flatulence [Unknown]
  - Abdominal distension [Unknown]

NARRATIVE: CASE EVENT DATE: 201811
